FAERS Safety Report 6933019-7 (Version None)
Quarter: 2010Q3

REPORT INFORMATION
  Report Type: 
  Country: None (occurrence: None)
  Receive Date: 20100818
  Receipt Date: 20100818
  Transmission Date: 20110219
  Serious: Yes (Life-Threatening, Hospitalization)
  Sender: FDA-Public Use
  Company Number: None

PATIENT
  Age: 60 Year
  Sex: Male
  Weight: 54.4316 kg

DRUGS (2)
  1. DIVALPROEX SODIUM [Suspect]
     Indication: AFFECTIVE DISORDER
     Dosage: 500 MG EVERY DAY PO
     Route: 048
     Dates: start: 20091209, end: 20091212
  2. DIVALPROEX SODIUM [Suspect]
     Indication: POST-TRAUMATIC STRESS DISORDER
     Dosage: 500 MG EVERY DAY PO
     Route: 048
     Dates: start: 20091209, end: 20091212

REACTIONS (5)
  - DYSPNOEA [None]
  - PHARYNGEAL OEDEMA [None]
  - RESPIRATORY DISORDER [None]
  - SWOLLEN TONGUE [None]
  - UPPER AIRWAY OBSTRUCTION [None]
